FAERS Safety Report 10341243 (Version 1)
Quarter: 2014Q3

REPORT INFORMATION
  Report Type: Spontaneous
  Country: US (occurrence: US)
  Receive Date: 20140725
  Receipt Date: 20140725
  Transmission Date: 20150326
  Serious: Yes (Hospitalization, Other)
  Sender: FDA-Public Use
  Company Number: US-AMGEN INC.-USASP2014054905

PATIENT
  Age: 55 Year
  Sex: Female

DRUGS (1)
  1. ENBREL [Suspect]
     Active Substance: ETANERCEPT
     Indication: RHEUMATOID ARTHRITIS
     Dosage: 50 MG, QWK
     Route: 065
     Dates: start: 20001101

REACTIONS (12)
  - Pneumonia necrotising [Recovered/Resolved]
  - Coma [Recovered/Resolved]
  - Respiratory arrest [Recovered/Resolved]
  - Anaemia [Recovered/Resolved]
  - Tracheostomy [Recovered/Resolved]
  - Inflammation [Not Recovered/Not Resolved]
  - Pneumothorax [Recovered/Resolved]
  - Malaise [Recovered/Resolved]
  - Arthralgia [Not Recovered/Not Resolved]
  - Endotracheal intubation [Recovered/Resolved]
  - Biliary drainage [Recovered/Resolved]
  - Surgery [Recovered/Resolved]
